FAERS Safety Report 18355772 (Version 1)
Quarter: 2020Q4

REPORT INFORMATION
  Report Type: Spontaneous
  Country: US (occurrence: US)
  Receive Date: 20201007
  Receipt Date: 20201007
  Transmission Date: 20210114
  Serious: Yes (Other)
  Sender: FDA-Public Use
  Company Number: None

PATIENT
  Age: 29 Year
  Sex: Male
  Weight: 70.2 kg

DRUGS (5)
  1. DAILY VITAMIN [Concomitant]
     Active Substance: VITAMINS
  2. CARISPODOL [Concomitant]
  3. MORPHINE [Concomitant]
     Active Substance: MORPHINE
  4. PROBIOTIC [Concomitant]
     Active Substance: PROBIOTICS NOS
  5. CARISOPRODOL 350MG [Suspect]
     Active Substance: CARISOPRODOL
     Indication: SPINAL OPERATION
     Dosage: ?          QUANTITY:90 TABLET(S);?
     Route: 048
     Dates: start: 20200930, end: 20201005

REACTIONS (4)
  - Product substitution issue [None]
  - Dizziness [None]
  - Palpitations [None]
  - Product physical issue [None]
